FAERS Safety Report 4871609-6 (Version None)
Quarter: 2005Q4

REPORT INFORMATION
  Report Type: 
  Country: None (occurrence: None)
  Receive Date: 20051230
  Receipt Date: 20051216
  Transmission Date: 20060501
  Serious: Yes (Other)
  Sender: FDA-Public Use
  Company Number: GB200511002629

PATIENT
  Age: 28 Year
  Sex: Male
  Weight: 70.7 kg

DRUGS (1)
  1. ZYPREXA [Suspect]
     Indication: SCHIZOPHRENIA
     Dates: start: 20051018

REACTIONS (2)
  - BUNDLE BRANCH BLOCK RIGHT [None]
  - PRESCRIBED OVERDOSE [None]
